FAERS Safety Report 6852459-8 (Version None)
Quarter: 2010Q3

REPORT INFORMATION
  Report Type: 
  Country: None (occurrence: None)
  Receive Date: 20100717
  Receipt Date: 20071115
  Transmission Date: 20110219
  Serious: No
  Sender: FDA-Public Use
  Company Number: US-PFIZER INC-2007097664

PATIENT
  Sex: Male
  Weight: 83.9 kg

DRUGS (4)
  1. CHANTIX [Suspect]
     Indication: SMOKING CESSATION THERAPY
     Dates: start: 20071114
  2. LANTUS [Concomitant]
  3. KETOCONOZOLE [Concomitant]
  4. NEXIUM [Concomitant]

REACTIONS (1)
  - CHEST DISCOMFORT [None]
